FAERS Safety Report 6269972-7 (Version None)
Quarter: 2009Q3

REPORT INFORMATION
  Report Type: 
  Country: None (occurrence: None)
  Receive Date: 20090716
  Receipt Date: 20070726
  Transmission Date: 20100115
  Serious: Yes (Hospitalization, Other)
  Sender: FDA-Public Use
  Company Number: US-ASTRAZENECA-2007UW08813

PATIENT
  Age: 56 Year
  Sex: Female
  Weight: 97.1 kg

DRUGS (26)
  1. SEROQUEL [Suspect]
     Indication: SCHIZOPHRENIA
     Dosage: 25-100 MG
     Route: 048
     Dates: start: 19990119
  2. SEROQUEL [Suspect]
     Indication: BIPOLAR DISORDER
     Dosage: 25-100 MG
     Route: 048
     Dates: start: 19990119
  3. SEROQUEL [Suspect]
     Indication: DEPRESSION
     Dosage: 25-100 MG
     Route: 048
     Dates: start: 19990119
  4. SEROQUEL [Suspect]
     Route: 048
  5. SEROQUEL [Suspect]
     Route: 048
  6. SEROQUEL [Suspect]
     Route: 048
  7. RISPERDAL [Concomitant]
     Dates: start: 19960101
  8. ZYPREXA [Concomitant]
  9. PRIMIDONE [Concomitant]
     Indication: TREMOR
     Dosage: 50-100 MG
     Route: 048
  10. MECLIZINE [Concomitant]
     Indication: VERTIGO
     Dosage: 25-100 MG
     Route: 048
  11. XANAX [Concomitant]
     Dosage: 1-4 MG
     Route: 048
  12. EFFEXOR [Concomitant]
     Dosage: 37.5-150 MG
     Route: 048
  13. PROPRANOLOL HYDROCHLORIDE [Concomitant]
     Route: 048
  14. AVANDIA [Concomitant]
     Route: 048
  15. GLUCOPHAGE [Concomitant]
     Dosage: 500-1000 MG
     Route: 048
  16. LIBRAX [Concomitant]
     Dosage: THREE TIMES A DAILY
     Route: 048
  17. LIPITOR [Concomitant]
     Dosage: 10-20 MG
     Route: 048
  18. AMBIEN [Concomitant]
     Indication: INSOMNIA
     Dosage: 5-20 MG
     Route: 048
     Dates: start: 20030909
  19. ATIVAN [Concomitant]
     Indication: ANXIETY
     Dosage: 0.5-1.5 MG
     Route: 048
     Dates: start: 20020528
  20. LEXAPRO [Concomitant]
     Indication: DEPRESSION
     Dosage: 10-20 MG
     Route: 048
     Dates: start: 20021120
  21. DEPAKOTE [Concomitant]
     Route: 048
  22. PREVACID [Concomitant]
     Dosage: 30-60MG
     Route: 048
  23. NITROGLYCERIN [Concomitant]
     Indication: CHEST PAIN
     Route: 060
  24. LASIX [Concomitant]
     Route: 048
  25. CYLERT [Concomitant]
     Dosage: 37.5-75 MG
     Route: 048
  26. GEMFIBROZIL [Concomitant]
     Dosage: 600-1200 MG
     Route: 048

REACTIONS (5)
  - CARDIAC FAILURE [None]
  - DIABETES MELLITUS [None]
  - DIABETIC NEUROPATHY [None]
  - HYPERGLYCAEMIA [None]
  - RETINAL DISORDER [None]
